FAERS Safety Report 4837148-3 (Version None)
Quarter: 2005Q4

REPORT INFORMATION
  Report Type: 
  Country: None (occurrence: None)
  Receive Date: 20051122
  Receipt Date: 20051110
  Transmission Date: 20060501
  Serious: Yes (Disabling, Other)
  Sender: FDA-Public Use
  Company Number: 2005154733

PATIENT
  Age: 39 Year
  Sex: Female
  Weight: 90.7194 kg

DRUGS (5)
  1. NEURONTIN [Suspect]
     Indication: HYPOAESTHESIA
     Dosage: 1200 MG (300 MG,4 IN 1 D), ORAL
     Route: 048
     Dates: start: 20050101
  2. GABAPENTIN [Suspect]
     Indication: HYPOAESTHESIA
     Dosage: 1200 MG (300 MG,4 IN 1 D), ORAL
     Route: 048
     Dates: start: 20051001
  3. DETROL LA [Concomitant]
  4. LEVOXYL [Concomitant]
  5. ZOLOFT [Concomitant]

REACTIONS (12)
  - ACTIVITIES OF DAILY LIVING IMPAIRED [None]
  - DRUG PRESCRIBING ERROR [None]
  - DYSSTASIA [None]
  - HYPOAESTHESIA [None]
  - LYMPHOMA [None]
  - MALAISE [None]
  - MULTIPLE SCLEROSIS RELAPSE [None]
  - PARAESTHESIA [None]
  - THERAPEUTIC RESPONSE UNEXPECTED WITH DRUG SUBSTITUTION [None]
  - TREATMENT NONCOMPLIANCE [None]
  - UNDERDOSE [None]
  - VOMITING [None]
